FAERS Safety Report 4808504-4 (Version None)
Quarter: 2005Q4

REPORT INFORMATION
  Report Type: 
  Country: None (occurrence: None)
  Receive Date: 20051025
  Receipt Date: 20051013
  Transmission Date: 20060501
  Serious: Yes (Other)
  Sender: FDA-Public Use
  Company Number: 2005AP05363

PATIENT
  Age: 70 Year

DRUGS (1)
  1. MEROPENEM [Suspect]

REACTIONS (1)
  - INTERSTITIAL LUNG DISEASE [None]
